FAERS Safety Report 7496901-0 (Version None)
Quarter: 2011Q2

REPORT INFORMATION
  Report Type: 
  Country: None (occurrence: None)
  Receive Date: 20110523
  Receipt Date: 20110517
  Transmission Date: 20111010
  Serious: Yes (Hospitalization)
  Sender: FDA-Public Use
  Company Number: FR-ABBOTT-11P-056-0726509-00

PATIENT
  Sex: Female

DRUGS (6)
  1. CLARITHROMYCIN [Suspect]
     Indication: SKIN ULCER
     Route: 048
     Dates: start: 20110301, end: 20110305
  2. AMOXICILLIN [Suspect]
     Indication: SKIN ULCER
     Route: 048
     Dates: start: 20110221, end: 20110305
  3. FUSIDIC ACID [Concomitant]
     Indication: PRODUCT USED FOR UNKNOWN INDICATION
     Dosage: DAILY DOSE: 6 DF
     Route: 048
     Dates: start: 20110221, end: 20110301
  4. RISPERIDONE [Concomitant]
     Indication: PSYCHOTIC DISORDER
     Route: 048
  5. FUROSEMIDE [Concomitant]
     Indication: HYPERTENSION
     Route: 048
  6. INSULIN [Concomitant]
     Indication: TYPE 1 DIABETES MELLITUS
     Dosage: DAILY DOSE: 18 UI

REACTIONS (5)
  - RASH [None]
  - SKIN TEST POSITIVE [None]
  - BLISTER [None]
  - SKIN EXFOLIATION [None]
  - DERMATITIS EXFOLIATIVE [None]
